FAERS Safety Report 9297242 (Version 5)
Quarter: 2013Q3

REPORT INFORMATION
  Report Type: Spontaneous
  Country: US (occurrence: US)
  Receive Date: 20130520
  Receipt Date: 20130830
  Transmission Date: 20140515
  Serious: Yes (Hospitalization, Other)
  Sender: FDA-Public Use
  Company Number: US-BIOGENIDEC-2013BI042436

PATIENT
  Age: 68 Year
  Sex: Female

DRUGS (5)
  1. TYSABRI [Suspect]
     Indication: MULTIPLE SCLEROSIS
     Route: 042
     Dates: start: 20050111
  2. TYSABRI [Suspect]
     Indication: MULTIPLE SCLEROSIS
     Route: 042
     Dates: start: 20121128, end: 20130424
  3. AVONEX [Concomitant]
     Indication: MULTIPLE SCLEROSIS
  4. CYCLOPHOSPHAMIDE [Concomitant]
     Indication: MULTIPLE SCLEROSIS
  5. MYCOPHENOLATE MOFETIL [Concomitant]
     Indication: MULTIPLE SCLEROSIS

REACTIONS (4)
  - Breast cancer [Recovered/Resolved]
  - Lymphoma [Not Recovered/Not Resolved]
  - Thrombosis [Unknown]
  - Procedural pain [Unknown]
